FAERS Safety Report 19151736 (Version 2)
Quarter: 2021Q2

REPORT INFORMATION
  Report Type: Spontaneous
  Country: US (occurrence: US)
  Receive Date: 20210419
  Receipt Date: 20210506
  Transmission Date: 20210717
  Serious: No
  Sender: FDA-Public Use
  Company Number: US-GLENMARK PHARMACEUTICALS-2021GMK052485

PATIENT

DRUGS (1)
  1. CLOBETASOL PROPIONATE OINTMENT USP [Suspect]
     Active Substance: CLOBETASOL PROPIONATE
     Indication: LICHEN SCLEROSUS
     Dosage: UNK, PRN, AS NEEDED
     Route: 061

REACTIONS (4)
  - No adverse event [Unknown]
  - Expired product administered [Unknown]
  - Product use in unapproved indication [Unknown]
  - Product container issue [Unknown]
